FAERS Safety Report 18224189 (Version 1)
Quarter: 2020Q3

REPORT INFORMATION
  Report Type: Report from Study
  Country: DE (occurrence: DE)
  Receive Date: 20200902
  Receipt Date: 20200902
  Transmission Date: 20201103
  Serious: Yes (Hospitalization, Other)
  Sender: FDA-Public Use
  Company Number: DE-PFIZER INC-2020335159

PATIENT
  Sex: Female

DRUGS (5)
  1. NO SUBJECT DRUG [Suspect]
     Active Substance: UNSPECIFIED INGREDIENT
     Dosage: NO DOSE GIVEN
  2. METHOTREXATE SODIUM. [Suspect]
     Active Substance: METHOTREXATE SODIUM
     Dosage: UNK
     Route: 065
  3. ORENCIA [Suspect]
     Active Substance: ABATACEPT
     Dosage: 125 MG
     Route: 065
     Dates: start: 202001, end: 202002
  4. METHOTREXATE SODIUM. [Suspect]
     Active Substance: METHOTREXATE SODIUM
     Dosage: UNK
     Route: 065
  5. ERELZI [Suspect]
     Active Substance: ETANERCEPT-SZZS
     Indication: RHEUMATOID ARTHRITIS
     Dosage: 50 MG
     Route: 065
     Dates: start: 201908, end: 201911

REACTIONS (11)
  - Diabetes mellitus [Not Recovered/Not Resolved]
  - Flank pain [Recovered/Resolved]
  - Rheumatoid arthritis [Recovered/Resolved]
  - Oedema peripheral [Unknown]
  - Stomatitis [Unknown]
  - Pulmonary embolism [Recovered/Resolved]
  - Cardiac failure [Recovered/Resolved]
  - Arrhythmia [Unknown]
  - Eye inflammation [Unknown]
  - Musculoskeletal pain [Recovered/Resolved]
  - Hyponatraemia [Recovered/Resolved]

NARRATIVE: CASE EVENT DATE: 20191108
